FAERS Safety Report 11120714 (Version 1)
Quarter: 2015Q2

REPORT INFORMATION
  Report Type: Spontaneous
  Country: US (occurrence: US)
  Receive Date: 20150519
  Receipt Date: 20150519
  Transmission Date: 20150821
  Serious: No
  Sender: FDA-Public Use
  Company Number: US-BAYER-2015-236216

PATIENT
  Age: 94 Year
  Sex: Female
  Weight: 63 kg

DRUGS (8)
  1. CLARITIN [Suspect]
     Active Substance: LORATADINE
     Indication: URTICARIA
     Dosage: UNK
     Route: 048
     Dates: start: 20150315
  2. ATENOLOL. [Concomitant]
     Active Substance: ATENOLOL
     Dosage: 25 MG, BID
  3. CLARITIN [Suspect]
     Active Substance: LORATADINE
     Indication: PRURITUS
  4. VYTORIN [Concomitant]
     Active Substance: EZETIMIBE\SIMVASTATIN
     Dosage: UNK UNK, QD
  5. OMEPRAZOLE. [Concomitant]
     Active Substance: OMEPRAZOLE
     Dosage: UNK UNK, QD
  6. DIOVAN [VALSARTAN] [Concomitant]
     Dosage: UNK UNK, QD
  7. MAXZIDE [Concomitant]
     Active Substance: HYDROCHLOROTHIAZIDE\TRIAMTERENE
     Dosage: UNK UNK, QD
  8. CITRACAL PETITES [Concomitant]
     Active Substance: CALCIUM CITRATE
     Dosage: 2 DF, QD

REACTIONS (1)
  - Drug effect incomplete [None]
